FAERS Safety Report 8896089 (Version 2)
Quarter: 2012Q4

REPORT INFORMATION
  Report Type: 
  Country: DE (occurrence: IT)
  Receive Date: 20121108
  Receipt Date: 20121130
  Transmission Date: 20130627
  Serious: Yes (Hospitalization)
  Sender: FDA-Public Use
  Company Number: IT-FRI-1000040122

PATIENT
  Age: 87 Year
  Sex: Male
  Weight: 70 kg

DRUGS (5)
  1. MEMANTINE [Suspect]
     Indication: VASCULAR DEMENTIA
     Dosage: 20 mg
     Route: 050
     Dates: start: 2010, end: 20121011
  2. DILZENE [Concomitant]
     Indication: ATRIAL FIBRILLATION
     Dosage: 180 mg
     Route: 048
     Dates: start: 2000
  3. COUMADIN [Concomitant]
     Indication: THROMBOSIS PROPHYLAXIS
     Dosage: 2.5 mg
     Route: 048
     Dates: start: 2000
  4. VITAMINS [Concomitant]
  5. FOOD SUPPLEMENTS [Concomitant]

REACTIONS (4)
  - Dyspnoea [Recovered/Resolved]
  - Loss of consciousness [Recovered/Resolved]
  - Muscle rigidity [Recovered/Resolved]
  - Somnolence [Recovered/Resolved]
